FAERS Safety Report 4365503-7 (Version None)
Quarter: 2004Q2

REPORT INFORMATION
  Report Type: 
  Country: None (occurrence: None)
  Receive Date: 20040520
  Receipt Date: 20040507
  Transmission Date: 20050107
  Serious: Yes (Hospitalization)
  Sender: FDA-Public Use
  Company Number: US-JNJFOC-20030800774

PATIENT
  Age: 17 Year
  Sex: Male
  Weight: 78.0187 kg

DRUGS (11)
  1. REMICADE [Suspect]
     Indication: CROHN'S DISEASE
     Dosage: SEE IMAGE
     Route: 042
     Dates: start: 20010901
  2. REMICADE [Suspect]
     Indication: CROHN'S DISEASE
     Dosage: SEE IMAGE
     Route: 042
     Dates: start: 20010910
  3. REMICADE [Suspect]
     Indication: CROHN'S DISEASE
     Dosage: SEE IMAGE
     Route: 042
     Dates: start: 20030619
  4. AZLFADINE (SULFASALAZINE) [Concomitant]
  5. VIOXX [Concomitant]
  6. MERCAPTOPURINE [Concomitant]
  7. AZULFADINE (SULFASALAZINE) [Concomitant]
  8. VIOXX [Concomitant]
  9. FESO4 (FERROUS SULFATE) [Concomitant]
  10. ACIPHEX [Concomitant]
  11. MULTIVITAMIN (MULTIVITAMINS) [Concomitant]

REACTIONS (14)
  - ARTHRITIS [None]
  - BLINDNESS TRANSIENT [None]
  - BLOOD PRESSURE SYSTOLIC INCREASED [None]
  - BODY TEMPERATURE DECREASED [None]
  - BRAIN NEOPLASM [None]
  - CEREBRAL CYST [None]
  - CEREBRAL HAEMORRHAGE [None]
  - DRUG HYPERSENSITIVITY [None]
  - FALL [None]
  - HEAD INJURY [None]
  - LOSS OF CONSCIOUSNESS [None]
  - MULTIPLE SCLEROSIS [None]
  - OPTIC NEURITIS [None]
  - WEIGHT DECREASED [None]
